FAERS Safety Report 5138341-5 (Version None)
Quarter: 2006Q4

REPORT INFORMATION
  Report Type: 
  Country: None (occurrence: None)
  Receive Date: 20061030
  Receipt Date: 20060828
  Transmission Date: 20070319
  Serious: Yes (Other)
  Sender: FDA-Public Use
  Company Number: US-GLAXOSMITHKLINE-A0618407A

PATIENT
  Sex: Female

DRUGS (3)
  1. ADVAIR HFA [Suspect]
  2. SINGULAIR [Suspect]
  3. ALBUTEROL [Suspect]

REACTIONS (1)
  - ASTHMA [None]
